FAERS Safety Report 5312821-1 (Version None)
Quarter: 2007Q2

REPORT INFORMATION
  Report Type: 
  Country: None (occurrence: None)
  Receive Date: 20070424
  Receipt Date: 20070413
  Transmission Date: 20071010
  Serious: Yes (Disabling)
  Sender: FDA-Public Use
  Company Number: 155317USA

PATIENT
  Sex: Female

DRUGS (1)
  1. MIRTAZAPINE [Suspect]
     Dosage: (15 MG), ORAL
     Route: 048
     Dates: start: 20031001, end: 20060615

REACTIONS (20)
  - ACTIVITIES OF DAILY LIVING IMPAIRED [None]
  - ANXIETY [None]
  - CONFUSIONAL STATE [None]
  - CONSTIPATION [None]
  - DIZZINESS [None]
  - DRY MOUTH [None]
  - FALL [None]
  - FATIGUE [None]
  - FEAR [None]
  - HALLUCINATION [None]
  - HIP FRACTURE [None]
  - INJURY [None]
  - NAUSEA [None]
  - PANIC REACTION [None]
  - PRURITUS [None]
  - STOMACH DISCOMFORT [None]
  - SUICIDAL IDEATION [None]
  - TINNITUS [None]
  - VISION BLURRED [None]
  - VOMITING [None]
